FAERS Safety Report 19130194 (Version 1)
Quarter: 2021Q2

REPORT INFORMATION
  Report Type: Spontaneous
  Country: US (occurrence: US)
  Receive Date: 20210414
  Receipt Date: 20210414
  Transmission Date: 20210717
  Serious: No
  Sender: FDA-Public Use
  Company Number: US-CADILA HEALTHCARE LIMITED-US-ZYDUS-061202

PATIENT

DRUGS (4)
  1. FLUCONAZOLE 150 MILLIGRAM TABLET [Suspect]
     Active Substance: FLUCONAZOLE
     Dosage: 150 MILLIGRAM, ONCE A WEEK
     Route: 048
     Dates: start: 202008
  2. FLUCONAZOLE 150 MILLIGRAM TABLET [Suspect]
     Active Substance: FLUCONAZOLE
     Dosage: 150 MILLIGRAM, ONCE A WEEK
     Route: 048
     Dates: start: 20200626, end: 202007
  3. FLUCONAZOLE 150 MILLIGRAM TABLET [Suspect]
     Active Substance: FLUCONAZOLE
     Indication: FUNGAL INFECTION
     Dosage: 300 MILLIGRAM, ONCE A WEEK
     Route: 048
     Dates: start: 20200605, end: 20200625
  4. FLUCONAZOLE 150 MILLIGRAM TABLET [Suspect]
     Active Substance: FLUCONAZOLE
     Dosage: 300 MILLIGRAM, ONCE A WEEK
     Route: 048
     Dates: start: 202007, end: 202007

REACTIONS (4)
  - Malaise [Recovered/Resolved]
  - Fatigue [Recovered/Resolved]
  - Nausea [Recovered/Resolved]
  - Balance disorder [Recovered/Resolved]

NARRATIVE: CASE EVENT DATE: 202006
